FAERS Safety Report 9300187 (Version 2)
Quarter: 2013Q2

REPORT INFORMATION
  Report Type: Spontaneous
  Country: FR (occurrence: FR)
  Receive Date: 20130521
  Receipt Date: 20130617
  Transmission Date: 20140414
  Serious: Yes (Hospitalization)
  Sender: FDA-Public Use
  Company Number: PHHY2013FR049776

PATIENT
  Sex: Male

DRUGS (12)
  1. STALEVO [Suspect]
     Dosage: 600 MG, QD
  2. REQUIP [Suspect]
     Dosage: 8 MG, DAILY
     Route: 048
     Dates: start: 2011
  3. REQUIP [Suspect]
     Dosage: 4 MG, DAILY
     Route: 048
     Dates: start: 20130123, end: 20130124
  4. SINEMET LP [Suspect]
     Dosage: 200 MG, UNK
  5. MANTADIX [Suspect]
     Dosage: 100 MG, BID
     Dates: end: 20130124
  6. AZILECT [Concomitant]
     Dosage: 1 MG, QD
  7. CLOZAPINE [Concomitant]
     Dosage: 1.5 DF, DAILY
     Dates: start: 201108, end: 201301
  8. CLOZAPINE [Concomitant]
     Dosage: 75 MG, QD
     Dates: start: 20130123
  9. CLOZAPINE [Concomitant]
     Dosage: 150 MG, QD
     Dates: start: 20130125
  10. CLOZAPINE [Concomitant]
     Dosage: 250 MG, QD
     Dates: start: 20130129
  11. CLOZAPINE [Concomitant]
     Dosage: 200 MG, QD
     Dates: start: 20130219
  12. TEMESTA [Concomitant]
     Dosage: 3 MG, QD

REACTIONS (3)
  - Delirium [Recovered/Resolved]
  - Hallucination, auditory [None]
  - Sedation [None]
